FAERS Safety Report 16860226 (Version 3)
Quarter: 2019Q4

REPORT INFORMATION
  Report Type: Spontaneous
  Country: US (occurrence: US)
  Receive Date: 20190927
  Receipt Date: 20191204
  Transmission Date: 20200122
  Serious: No
  Sender: FDA-Public Use
  Company Number: US-PFIZER INC-2019412646

PATIENT
  Age: 52 Year
  Sex: Female
  Weight: 75.28 kg

DRUGS (6)
  1. RELPAX [Suspect]
     Active Substance: ELETRIPTAN HYDROBROMIDE
     Indication: MIGRAINE
     Dosage: 40 MG, AS NEEDED (40 MF PRN)
     Dates: start: 201907
  2. RELPAX [Suspect]
     Active Substance: ELETRIPTAN HYDROBROMIDE
     Dosage: 40 MG, UNK
     Dates: start: 201908
  3. RELPAX [Suspect]
     Active Substance: ELETRIPTAN HYDROBROMIDE
     Dosage: UNK
     Dates: start: 2019
  4. EMGALITY [Concomitant]
     Active Substance: GALCANEZUMAB-GNLM
     Indication: MIGRAINE
     Dosage: 120 ML, MONTHLY
     Dates: start: 20181218, end: 201910
  5. LEVOFLOXACIN. [Concomitant]
     Active Substance: LEVOFLOXACIN
     Dosage: 750 MG, 1X/DAY (1X DAILY FOR 2 WKS IN END SEP/OCT2019)
     Dates: start: 2019
  6. IBUPROFEN. [Concomitant]
     Active Substance: IBUPROFEN
     Dosage: 400 MG, AS NEEDED (200 MG 2 TABLETS/3PRN)

REACTIONS (31)
  - Headache [Recovered/Resolved]
  - Urinary tract infection [Recovered/Resolved]
  - Diarrhoea [Recovered/Resolved]
  - Abdominal distension [Not Recovered/Not Resolved]
  - Insomnia [Unknown]
  - Myalgia [Recovered/Resolved]
  - Hyperhidrosis [Recovered/Resolved]
  - Eye pruritus [Recovered/Resolved]
  - Arthralgia [Recovered/Resolved]
  - Flatulence [Recovered/Resolved]
  - Palpitations [Recovered/Resolved]
  - Recalled product administered [Unknown]
  - Nausea [Unknown]
  - Productive cough [Recovered/Resolved]
  - Lymph node pain [Recovered/Resolved]
  - Dizziness [Recovered/Resolved]
  - Fatigue [Recovering/Resolving]
  - Pain [Recovered/Resolved]
  - Otorrhoea [Recovered/Resolved]
  - Dyspepsia [Unknown]
  - Restless legs syndrome [Unknown]
  - Cough [Recovered/Resolved]
  - Constipation [Recovered/Resolved]
  - Feeling hot [Unknown]
  - Pruritus [Recovered/Resolved]
  - Gastrooesophageal reflux disease [Unknown]
  - Abdominal pain [Recovered/Resolved]
  - Muscle spasms [Unknown]
  - Chills [Recovered/Resolved]
  - Tinnitus [Recovered/Resolved]
  - Gastrointestinal disorder [Recovered/Resolved]

NARRATIVE: CASE EVENT DATE: 2019
